FAERS Safety Report 18314147 (Version 1)
Quarter: 2020Q3

REPORT INFORMATION
  Report Type: Report from Study
  Country: US (occurrence: US)
  Receive Date: 20200925
  Receipt Date: 20200925
  Transmission Date: 20201103
  Serious: Yes (Hospitalization, Other)
  Sender: FDA-Public Use
  Company Number: US-JNJFOC-A-US2019-194599

PATIENT
  Age: 50 Year
  Sex: Female
  Weight: 89.44 kg

DRUGS (10)
  1. UPTRAVI [Suspect]
     Active Substance: SELEXIPAG
     Dosage: 600 MCG, BID
     Route: 048
     Dates: start: 20190808
  2. UPTRAVI [Suspect]
     Active Substance: SELEXIPAG
     Dosage: 600 MCG,QAM, 400 MCG ,QPM
     Route: 048
  3. FUROSEMIDE. [Concomitant]
     Active Substance: FUROSEMIDE
     Dosage: 20 MG, QD
  4. UPTRAVI [Suspect]
     Active Substance: SELEXIPAG
     Indication: PULMONARY ARTERIAL HYPERTENSION
     Dosage: 800 MCG, BID
     Route: 048
  5. UPTRAVI [Suspect]
     Active Substance: SELEXIPAG
     Dosage: 200 MCG, BID
     Route: 048
  6. ADEMPAS [Concomitant]
     Active Substance: RIOCIGUAT
     Dosage: 1.5 MG
  7. PANTOPRAZOLE [Concomitant]
     Active Substance: PANTOPRAZOLE
     Indication: DYSPEPSIA
     Dosage: 40 MG, QD
  8. OPSUMIT [Suspect]
     Active Substance: MACITENTAN
     Indication: PULMONARY ARTERIAL HYPERTENSION
     Dosage: 10 MG, QD
     Route: 048
     Dates: start: 20190403
  9. ADEMPAS [Concomitant]
     Active Substance: RIOCIGUAT
     Dosage: 2.5 UNK
  10. UPTRAVI [Suspect]
     Active Substance: SELEXIPAG
     Dosage: 400 MCG, BID
     Route: 048
     Dates: start: 20190816

REACTIONS (29)
  - Stress [Unknown]
  - Cough [Unknown]
  - Insomnia [Unknown]
  - Inflammation [Not Recovered/Not Resolved]
  - Migraine [Unknown]
  - Arthralgia [Unknown]
  - Upper respiratory tract infection [Unknown]
  - Musculoskeletal stiffness [Unknown]
  - Nausea [Not Recovered/Not Resolved]
  - Contusion [Unknown]
  - Rash erythematous [Unknown]
  - Fatigue [Recovering/Resolving]
  - Muscle spasms [Unknown]
  - Respiratory tract infection [Unknown]
  - Peripheral swelling [Unknown]
  - Abdominal discomfort [Recovered/Resolved]
  - Pain in jaw [Not Recovered/Not Resolved]
  - Hypotension [Unknown]
  - Wrong dose [Unknown]
  - Dermatitis contact [Recovered/Resolved]
  - Seasonal allergy [Unknown]
  - Dyspepsia [Unknown]
  - Flushing [Unknown]
  - Neck pain [Unknown]
  - Headache [Unknown]
  - Diarrhoea [Unknown]
  - Sneezing [Unknown]
  - Unevaluable event [Unknown]
  - Productive cough [Unknown]

NARRATIVE: CASE EVENT DATE: 20190819
